FAERS Safety Report 17652968 (Version 3)
Quarter: 2020Q2

REPORT INFORMATION
  Report Type: Spontaneous
  Country: CO (occurrence: CO)
  Receive Date: 20200409
  Receipt Date: 20200618
  Transmission Date: 20200713
  Serious: Yes (Other)
  Sender: FDA-Public Use
  Company Number: CO-PFIZER INC-2020145403

PATIENT
  Age: 57 Year
  Sex: Female

DRUGS (1)
  1. XELJANZ [Suspect]
     Active Substance: TOFACITINIB CITRATE
     Indication: RHEUMATOID ARTHRITIS
     Dosage: 5 MG, 2X/DAY
     Route: 048

REACTIONS (5)
  - Gastritis [Recovered/Resolved]
  - Pain in extremity [Recovered/Resolved]
  - Skin discolouration [Unknown]
  - Ovarian cancer [Unknown]
  - Mass [Unknown]

NARRATIVE: CASE EVENT DATE: 201911
